FAERS Safety Report 7603690-5 (Version None)
Quarter: 2011Q3

REPORT INFORMATION
  Report Type: 
  Country: None (occurrence: None)
  Receive Date: 20110712
  Receipt Date: 20110705
  Transmission Date: 20111222
  Serious: Yes (Hospitalization, Other)
  Sender: FDA-Public Use
  Company Number: FR-TEVA-289323ISR

PATIENT
  Sex: Female

DRUGS (5)
  1. AMOXICILLIN [Suspect]
     Indication: LUNG DISORDER
     Dosage: 3 GRAM;
     Dates: start: 20110531, end: 20110605
  2. ACETAMINOPHEN [Concomitant]
  3. DIHYDROERGOTAMINE MESYLATE [Concomitant]
  4. CORTICOSTEROID NOS [Concomitant]
     Indication: BRONCHITIS
     Dosage: 60 MILLIGRAM;
  5. LORAZEPAM [Concomitant]
     Dosage: 1 MILLIGRAM;

REACTIONS (2)
  - CHRONIC LYMPHOCYTIC LEUKAEMIA [None]
  - TOXIC SKIN ERUPTION [None]
